FAERS Safety Report 17206844 (Version 1)
Quarter: 2019Q4

REPORT INFORMATION
  Report Type: Spontaneous
  Country: SE (occurrence: SE)
  Receive Date: 20191227
  Receipt Date: 20191227
  Transmission Date: 20200122
  Serious: Yes (Hospitalization)
  Sender: FDA-Public Use
  Company Number: SE-TEVA-2019-SE-1157277

PATIENT
  Age: 25 Year
  Sex: Female

DRUGS (3)
  1. ZOPICLONE [Suspect]
     Active Substance: ZOPICLONE
     Dosage: 75 MG
     Route: 048
     Dates: start: 20180605, end: 20180605
  2. PROPAVAN [Suspect]
     Active Substance: PROPIOMAZINE
     Dosage: 1000 MG
     Route: 048
     Dates: start: 20180605, end: 20180605
  3. STESOLID [Suspect]
     Active Substance: DIAZEPAM
     Dosage: 40 MG
     Route: 048
     Dates: start: 20180605, end: 20180605

REACTIONS (4)
  - Heart rate increased [Unknown]
  - Somnolence [Unknown]
  - Intentional overdose [Unknown]
  - Intentional self-injury [Unknown]

NARRATIVE: CASE EVENT DATE: 20180605
